FAERS Safety Report 5902944-8 (Version None)
Quarter: 2008Q3

REPORT INFORMATION
  Report Type: 
  Country: None (occurrence: None)
  Receive Date: 20080930
  Receipt Date: 20080923
  Transmission Date: 20090109
  Serious: Yes (Hospitalization)
  Sender: FDA-Public Use
  Company Number: US-AVENTIS-200815807US

PATIENT
  Sex: Female
  Weight: 110.9 kg

DRUGS (22)
  1. LANTUS [Suspect]
     Route: 058
     Dates: start: 20070601
  2. LANTUS [Suspect]
     Dosage: DOSE: UNK
     Route: 058
     Dates: start: 20060101
  3. OPTICLIK (INSULIN INJECTION PEN) [Suspect]
     Dates: start: 20060101
  4. CORTICOSTEROIDS [Suspect]
     Dosage: DOSE: UNK
  5. DIGOXIN [Concomitant]
     Dosage: DOSE: UNK
  6. LISINOPRIL [Concomitant]
     Dosage: DOSE: UNK
  7. NORVASC [Concomitant]
     Dosage: DOSE: UNK
  8. LASIX [Concomitant]
     Dosage: DOSE: UNK
  9. METOPROLOL [Concomitant]
     Dosage: DOSE: UNK
  10. ZANTAC [Concomitant]
     Dosage: DOSE: UNK
  11. NORPACE CR [Concomitant]
     Indication: ATRIAL FIBRILLATION
     Dosage: DOSE: UNK
  12. PLAVIX [Concomitant]
     Dosage: DOSE: UNK
  13. ASPIRIN [Concomitant]
  14. MECLIZINE [Concomitant]
     Indication: VERTIGO
     Dosage: DOSE: UNK
  15. OCUVITE                            /01053801/ [Concomitant]
     Dosage: DOSE: UNK
  16. XALATAN [Concomitant]
     Indication: GLAUCOMA
     Dosage: DOSE: UNK
     Route: 047
  17. NATURAL TEARS [Concomitant]
     Dosage: DOSE: UNK
  18. KLOR-CON [Concomitant]
     Dosage: DOSE: UNK
  19. ALBUTEROL [Concomitant]
     Indication: ASTHMA
     Dosage: DOSE: UNK
  20. LIPITOR [Concomitant]
     Dosage: DOSE: UNK
  21. GLIMEPIRIDE [Concomitant]
     Dosage: DOSE: UNK
  22. AVANDIA [Concomitant]
     Dosage: DOSE: UNK
     Dates: end: 20080101

REACTIONS (4)
  - CARDIAC FAILURE CONGESTIVE [None]
  - DIABETES MELLITUS INADEQUATE CONTROL [None]
  - DYSPNOEA [None]
  - WHEEZING [None]
